FAERS Safety Report 10420737 (Version 1)
Quarter: 2014Q3

REPORT INFORMATION
  Report Type: Spontaneous
  Country: US (occurrence: None)
  Receive Date: 20140708
  Receipt Date: 20140708
  Transmission Date: 20150326
  Serious: Yes (Other)
  Sender: FDA-Public Use
  Company Number: 1313409

PATIENT
  Age: 63 Year
  Sex: Female

DRUGS (4)
  1. NIX [Suspect]
     Active Substance: PERMETHRIN
     Indication: LICE INFESTATION
     Dosage: TOPICAL APPLICATION X 4
     Route: 061
     Dates: start: 201310, end: 20130104
  2. COZAAR [Concomitant]
     Active Substance: LOSARTAN POTASSIUM
  3. COREG [Concomitant]
     Active Substance: CARVEDILOL
  4. ZOLOFT [Concomitant]
     Active Substance: SERTRALINE HYDROCHLORIDE

REACTIONS (3)
  - Headache [None]
  - Pruritus [None]
  - Skin ulcer [None]

NARRATIVE: CASE EVENT DATE: 201310
